FAERS Safety Report 21766760 (Version 5)
Quarter: 2024Q1

REPORT INFORMATION
  Report Type: Spontaneous
  Country: US (occurrence: US)
  Receive Date: 20221222
  Receipt Date: 20240122
  Transmission Date: 20240409
  Serious: No
  Sender: FDA-Public Use
  Company Number: US-PFIZER INC-PV202200114059

PATIENT
  Age: 59 Year
  Sex: Female

DRUGS (1)
  1. INLYTA [Suspect]
     Active Substance: AXITINIB
     Indication: Renal cell carcinoma
     Dosage: 5 MG, 1X/DAY
     Dates: end: 20231230

REACTIONS (7)
  - Chest pain [Unknown]
  - Pain [Unknown]
  - Respiratory disorder [Unknown]
  - Nasal congestion [Unknown]
  - Blood pressure increased [Unknown]
  - Neoplasm progression [Unknown]
  - Off label use [Unknown]
